FAERS Safety Report 6461760-1 (Version None)
Quarter: 2009Q4

REPORT INFORMATION
  Report Type: 
  Country: None (occurrence: None)
  Receive Date: 20091130
  Receipt Date: 20091117
  Transmission Date: 20100525
  Serious: Yes (Hospitalization, Other)
  Sender: FDA-Public Use
  Company Number: PHEH2008US06052

PATIENT
  Sex: Female

DRUGS (29)
  1. ESTRADERM [Suspect]
     Indication: HORMONE REPLACEMENT THERAPY
     Dosage: UNK
     Route: 062
     Dates: start: 19930707, end: 19960216
  2. PROVERA [Suspect]
     Indication: HORMONE REPLACEMENT THERAPY
     Dosage: UNK
     Dates: start: 19860812, end: 19930707
  3. HYDROCHLOROTHIAZIDE [Concomitant]
     Dosage: 12.5 MG / DAILY
  4. SYNTHROID [Concomitant]
     Dosage: UNK
  5. ZOCOR [Concomitant]
     Dosage: 20 MG / DAILY
  6. BENZOTROPINE [Concomitant]
     Dosage: 1 MG / DAILY
  7. LISINOPRIL [Concomitant]
     Dosage: 40 MG / DAILY
  8. VOLTAREN                           /00372303/ [Concomitant]
     Dosage: UNK
  9. ASPIRIN [Concomitant]
     Dosage: UNK
  10. LEVOTHYROXINE SODIUM [Concomitant]
     Dosage: 88 MCG
  11. DICLOFENAC [Concomitant]
     Dosage: 50 MG / BID
  12. FUROSEMIDE [Concomitant]
     Dosage: 20 MG / 1/2 DAILY
  13. VANIQA [Concomitant]
     Dosage: UNK
  14. ABREVA [Concomitant]
     Dosage: UNK
  15. VITAMIN D [Concomitant]
     Dosage: UNK
  16. INDOMETHACIN [Concomitant]
     Dosage: 25 MG / TID
  17. COLCHICINE [Concomitant]
     Dosage: 0.6 MG / 1-2 X DAILY
  18. SIMVASTATIN [Concomitant]
     Dosage: 20 MG / DAILY
  19. LASIX [Concomitant]
     Dosage: 20 MG / DAILY PRN
  20. FOSAMAX [Concomitant]
     Dosage: 70 MG
  21. COGENTIN [Concomitant]
     Indication: TREMOR
     Dosage: 1 MG / QHS
  22. BEXTRA [Concomitant]
     Dosage: 20 MG / DAILY
  23. LETROZOLE [Concomitant]
     Dosage: 2.5 MG / DAILY
  24. ALEVE [Concomitant]
     Dosage: UNK
  25. PRINIVIL [Concomitant]
     Dosage: UNK
  26. LAMISIL                            /00992601/ [Concomitant]
     Indication: RASH
     Dosage: UNK
  27. FLUOCINOLONE ACETONIDE [Concomitant]
     Dosage: UNK
     Dates: end: 20040607
  28. ALLOPURINOL [Concomitant]
     Dosage: UNK
  29. QUESTRAN [Concomitant]
     Dosage: UNK

REACTIONS (35)
  - ALCOHOLISM [None]
  - ANXIETY [None]
  - ARTHRALGIA [None]
  - BASAL CELL CARCINOMA [None]
  - BIOPSY BREAST ABNORMAL [None]
  - BLOOD TRIGLYCERIDES INCREASED [None]
  - BREAST CANCER [None]
  - BREAST LUMP REMOVAL [None]
  - CARDIAC MURMUR [None]
  - CATARACT [None]
  - CERVICAL DYSPLASIA [None]
  - DERMATITIS [None]
  - DYSPHAGIA [None]
  - EYELID PTOSIS [None]
  - FEAR OF DISEASE [None]
  - FEELING ABNORMAL [None]
  - FLANK PAIN [None]
  - GOUT [None]
  - HEARING IMPAIRED [None]
  - HYPERTENSION [None]
  - HYPOTHYROIDISM [None]
  - IMPAIRED HEALING [None]
  - INSOMNIA [None]
  - LIFE EXPECTANCY SHORTENED [None]
  - LIVER FUNCTION TEST ABNORMAL [None]
  - LYMPHADENECTOMY [None]
  - MUSCLE STRAIN [None]
  - OEDEMA [None]
  - OSTEOPENIA [None]
  - PAIN [None]
  - PSYCHIATRIC SYMPTOM [None]
  - RASH PAPULAR [None]
  - SCAR [None]
  - TREMOR [None]
  - VAGINAL HAEMORRHAGE [None]
